FAERS Safety Report 12099568 (Version 1)
Quarter: 2016Q1

REPORT INFORMATION
  Report Type: Spontaneous
  Country: US (occurrence: None)
  Receive Date: 20160219
  Receipt Date: 20160219
  Transmission Date: 20160526
  Serious: Yes (Hospitalization)
  Sender: FDA-Public Use
  Company Number: None

PATIENT
  Age: 54 Year
  Sex: Female
  Weight: 51.26 kg

DRUGS (6)
  1. ALENDRONATE SODIUM 70 MG SUN PHARMACEUTICAL IND LTD [Suspect]
     Active Substance: ALENDRONATE SODIUM
     Indication: OSTEOPOROSIS
     Route: 048
     Dates: start: 20151208, end: 20151208
  2. D 3 [Concomitant]
  3. MAXALT [Concomitant]
     Active Substance: RIZATRIPTAN BENZOATE
  4. VITAMIN C [Concomitant]
     Active Substance: ASCORBIC ACID
  5. CALCIUM [Concomitant]
     Active Substance: CALCIUM
  6. MULTI VITAMIN [Concomitant]
     Active Substance: VITAMINS

REACTIONS (14)
  - Hypoaesthesia [None]
  - Diarrhoea [None]
  - Movement disorder [None]
  - Dyspnoea [None]
  - Pain [None]
  - Decreased appetite [None]
  - Paraesthesia [None]
  - Dysstasia [None]
  - Trismus [None]
  - Atrial fibrillation [None]
  - Muscle spasms [None]
  - Flatulence [None]
  - Nausea [None]
  - Pain in jaw [None]

NARRATIVE: CASE EVENT DATE: 20151208
